FAERS Safety Report 9486311 (Version 1)
Quarter: 2013Q3

REPORT INFORMATION
  Report Type: Spontaneous
  Country: US (occurrence: US)
  Receive Date: 20130829
  Receipt Date: 20130829
  Transmission Date: 20140515
  Serious: No
  Sender: FDA-Public Use
  Company Number: US-PFIZER INC-2013248076

PATIENT
  Sex: Male

DRUGS (2)
  1. ATORVASTATIN CALCIUM [Suspect]
     Dosage: UNK
  2. VITAMIN D [Suspect]
     Dosage: UNK

REACTIONS (1)
  - Urticaria [Unknown]
